FAERS Safety Report 9370281 (Version 2)
Quarter: 2013Q3

REPORT INFORMATION
  Report Type: Spontaneous
  Country: DE (occurrence: DE)
  Receive Date: 20130626
  Receipt Date: 20130705
  Transmission Date: 20140515
  Serious: Yes (Other)
  Sender: FDA-Public Use
  Company Number: DE-ASTRAZENECA-2013SE47906

PATIENT
  Age: 884 Month
  Sex: Male

DRUGS (4)
  1. SEROQUEL PROLONG [Suspect]
     Indication: MENTAL DISORDER
     Route: 048
  2. MARCUMAR [Interacting]
     Indication: ATRIAL FIBRILLATION
     Route: 065
     Dates: start: 201306
  3. RAMIPRIL [Concomitant]
  4. HCT [Concomitant]

REACTIONS (2)
  - Drug interaction [Recovered/Resolved]
  - Atrial fibrillation [Unknown]
